FAERS Safety Report 10270934 (Version 2)
Quarter: 2014Q3

REPORT INFORMATION
  Report Type: Report from Study
  Country: US (occurrence: US)
  Receive Date: 20140701
  Receipt Date: 20140905
  Transmission Date: 20150326
  Serious: Yes (Death)
  Sender: FDA-Public Use
  Company Number: US-VIIV HEALTHCARE LIMITED-B0965227A

PATIENT
  Age: 45 Year
  Sex: Male
  Weight: 27.3 kg

DRUGS (16)
  1. KALETRA [Concomitant]
     Active Substance: LOPINAVIR\RITONAVIR
     Dosage: 4TAB PER DAY
     Dates: start: 20080911, end: 20140115
  2. COMBIVENT [Concomitant]
     Active Substance: ALBUTEROL SULFATE\IPRATROPIUM BROMIDE
     Dates: start: 20081023, end: 20140115
  3. COMBIVENT [Concomitant]
     Active Substance: ALBUTEROL SULFATE\IPRATROPIUM BROMIDE
     Dates: start: 20081023, end: 20140115
  4. VALCYTE [Concomitant]
     Active Substance: VALGANCICLOVIR HYDROCHLORIDE
     Dates: start: 20080916, end: 20140115
  5. MARAVIROC [Suspect]
     Active Substance: MARAVIROC
     Indication: HIV INFECTION
     Dates: start: 20100110, end: 20140115
  6. AZITHROMYCIN [Concomitant]
     Active Substance: AZITHROMYCIN ANHYDROUS
     Dates: start: 20130402, end: 20140115
  7. ULTRAM [Concomitant]
     Active Substance: TRAMADOL HYDROCHLORIDE
     Dates: start: 20131120, end: 20140115
  8. NAPROSYN [Concomitant]
     Active Substance: NAPROXEN
     Dates: start: 20130321, end: 20140115
  9. MARINOL [Concomitant]
     Active Substance: DRONABINOL
     Dates: start: 20131120, end: 20140115
  10. ENSURE [Concomitant]
     Active Substance: AMINO ACIDS\DEXTROSE\ELECTROLYTES NOS\SOYBEAN OIL\VITAMINS
     Dates: start: 20131120, end: 20140115
  11. ZOFRAN [Concomitant]
     Active Substance: ONDANSETRON HYDROCHLORIDE
     Dates: start: 20131120, end: 20140115
  12. BACTRIM [Concomitant]
     Active Substance: SULFAMETHOXAZOLE\TRIMETHOPRIM
     Dates: start: 20071008
  13. TRUVADA [Concomitant]
     Active Substance: EMTRICITABINE\TENOFOVIR DISOPROXIL FUMARATE
     Indication: HIV INFECTION
     Dosage: 1TAB PER DAY
     Dates: start: 20080911, end: 20140115
  14. NYSTATIN. [Concomitant]
     Active Substance: NYSTATIN
     Dates: start: 20130321, end: 20140115
  15. FERROUS SULFATE [Concomitant]
     Active Substance: FERROUS SULFATE\FERROUS SULFATE, DRIED
     Dates: start: 20090122, end: 20140115
  16. PROVENTIL HFA [Concomitant]
     Active Substance: ALBUTEROL SULFATE
     Dates: start: 20071210, end: 20140115

REACTIONS (1)
  - HIV wasting syndrome [Fatal]

NARRATIVE: CASE EVENT DATE: 20130418
